FAERS Safety Report 7881089-4 (Version None)
Quarter: 2011Q4

REPORT INFORMATION
  Report Type: 
  Country: None (occurrence: None)
  Receive Date: 20111101
  Receipt Date: 20110603
  Transmission Date: 20120403
  Serious: No
  Sender: FDA-Public Use
  Company Number: US-AMGEN-USASP2011028824

PATIENT
  Age: 55 Year
  Weight: 72.562 kg

DRUGS (10)
  1. PLAQUENIL [Concomitant]
     Dosage: 200 MG, UNK
  2. SYNTHROID [Concomitant]
  3. VITAMIN C                          /00008001/ [Concomitant]
     Dosage: 500 MG, UNK
  4. ENBREL [Suspect]
     Indication: PRODUCT USED FOR UNKNOWN INDICATION
     Dosage: 25 MG, 2 TIMES/WK
     Route: 058
  5. BENADRYL [Concomitant]
  6. PHILLIPS                           /00061602/ [Concomitant]
  7. ALLEGRA [Concomitant]
     Dosage: 30 MG, UNK
  8. LEXAPRO [Concomitant]
     Dosage: 5 MG, UNK
  9. MULTIVITAMIN                       /00097801/ [Concomitant]
  10. MAGNESIUM [Concomitant]
     Dosage: 500 MG, UNK

REACTIONS (6)
  - POLLAKIURIA [None]
  - URINARY TRACT INFECTION [None]
  - DIARRHOEA [None]
  - OROPHARYNGEAL PAIN [None]
  - DYSPHAGIA [None]
  - SINUSITIS [None]
